FAERS Safety Report 4286093-3 (Version None)
Quarter: 2004Q1

REPORT INFORMATION
  Report Type: 
  Country: None (occurrence: None)
  Receive Date: 20040203
  Receipt Date: 20040122
  Transmission Date: 20041129
  Serious: Yes (Hospitalization, Other)
  Sender: FDA-Public Use
  Company Number: HQWYE527822JAN04

PATIENT
  Age: 6 Month
  Sex: Male

DRUGS (3)
  1. CHILDREN'S ADVIL [Suspect]
     Indication: PYREXIA
     Dosage: 65 MG X 4/D; ORAL
     Route: 048
     Dates: start: 20010330, end: 20010401
  2. FUCIDINE CAP [Suspect]
     Indication: VARICELLA
     Dosage: ORAL
     Route: 048
     Dates: start: 20010330, end: 20010401
  3. HEXOMEDINE (HEXAMIDINE ISETIONATE,) [Concomitant]
     Indication: VARICELLA
     Dosage: TOPICAL
     Route: 061
     Dates: start: 20010330, end: 20010401

REACTIONS (1)
  - SKIN INFECTION [None]
